FAERS Safety Report 6214839-3 (Version None)
Quarter: 2009Q2

REPORT INFORMATION
  Report Type: 
  Country: None (occurrence: None)
  Receive Date: 20090604
  Receipt Date: 20090527
  Transmission Date: 20091009
  Serious: Yes (Hospitalization)
  Sender: FDA-Public Use
  Company Number: US-ROCHE-635130

PATIENT
  Age: 86 Year
  Sex: Male

DRUGS (3)
  1. TAMIFLU [Suspect]
     Indication: DRUG USE FOR UNKNOWN INDICATION
     Route: 048
  2. MOTRIN [Concomitant]
  3. VANCOMYCIN HCL [Concomitant]

REACTIONS (1)
  - RENAL FAILURE [None]
